FAERS Safety Report 7119065-1 (Version None)
Quarter: 2010Q4

REPORT INFORMATION
  Report Type: 
  Country: None (occurrence: None)
  Receive Date: 20101123
  Receipt Date: 20101119
  Transmission Date: 20110411
  Serious: Yes (Other)
  Sender: FDA-Public Use
  Company Number: A0894535A

PATIENT
  Age: 51 Year
  Sex: Male

DRUGS (2)
  1. REQUIP [Suspect]
     Dosage: 3MG PER DAY
     Route: 048
     Dates: start: 20070101
  2. ADVAIR DISKUS 100/50 [Suspect]
     Route: 055
     Dates: start: 20070101

REACTIONS (3)
  - DRUG ADMINISTRATION ERROR [None]
  - INSOMNIA [None]
  - LOSS OF CONSCIOUSNESS [None]
